FAERS Safety Report 24072536 (Version 3)
Quarter: 2024Q3

REPORT INFORMATION
  Report Type: Spontaneous
  Country: US (occurrence: US)
  Receive Date: 20240710
  Receipt Date: 20240805
  Transmission Date: 20241017
  Serious: Yes (Other)
  Sender: JOHNSON AND JOHNSON
  Company Number: US-JNJFOC-20240705639

PATIENT
  Sex: Male

DRUGS (6)
  1. RYBREVANT [Suspect]
     Active Substance: AMIVANTAMAB-VMJW
     Indication: Non-small cell lung cancer
     Route: 065
  2. RYBREVANT [Suspect]
     Active Substance: AMIVANTAMAB-VMJW
     Route: 065
  3. RYBREVANT [Suspect]
     Active Substance: AMIVANTAMAB-VMJW
     Route: 065
  4. RYBREVANT [Suspect]
     Active Substance: AMIVANTAMAB-VMJW
     Route: 065
  5. CARBOPLATIN [Suspect]
     Active Substance: CARBOPLATIN
     Indication: Product used for unknown indication
     Route: 065
  6. PEMETREXED [Suspect]
     Active Substance: PEMETREXED
     Indication: Product used for unknown indication
     Route: 065

REACTIONS (2)
  - Mucosal inflammation [Unknown]
  - Product dose omission issue [Unknown]
